FAERS Safety Report 8596201-1 (Version None)
Quarter: 2012Q3

REPORT INFORMATION
  Report Type: 
  Country: None (occurrence: None)
  Receive Date: 20120815
  Receipt Date: 20120808
  Transmission Date: 20120928
  Serious: Yes (Hospitalization)
  Sender: FDA-Public Use
  Company Number: JP-GLAXOSMITHKLINE-B0669827A

PATIENT
  Sex: Female

DRUGS (4)
  1. CLOBAZAM [Concomitant]
     Indication: EPILEPSY
     Dosage: 21MG PER DAY
     Route: 048
     Dates: start: 20100715, end: 20100831
  2. DEPAKENE [Suspect]
     Indication: EPILEPSY
     Dosage: 1000MG PER DAY
     Route: 048
     Dates: start: 20100507
  3. LAMICTAL [Suspect]
     Indication: EPILEPSY
     Dosage: 50MG PER DAY
     Route: 048
     Dates: start: 20100510, end: 20100625
  4. TEGRETOL [Concomitant]
     Indication: EPILEPSY
     Dosage: 300MG PER DAY
     Route: 048
     Dates: start: 20100707, end: 20100813

REACTIONS (13)
  - PERIPROCTITIS [None]
  - LYMPHOCYTE STIMULATION TEST POSITIVE [None]
  - GAMMA-GLUTAMYLTRANSFERASE INCREASED [None]
  - RASH GENERALISED [None]
  - PYREXIA [None]
  - WHITE BLOOD CELL COUNT INCREASED [None]
  - DRUG RASH WITH EOSINOPHILIA AND SYSTEMIC SYMPTOMS [None]
  - ANAL EROSION [None]
  - GENERALISED ERYTHEMA [None]
  - ANAL HAEMORRHAGE [None]
  - RASH [None]
  - TOXIC SKIN ERUPTION [None]
  - HUMAN HERPES VIRUS 6 SEROLOGY POSITIVE [None]
